FAERS Safety Report 11633219 (Version 1)
Quarter: 2015Q4

REPORT INFORMATION
  Report Type: Spontaneous
  Country: US (occurrence: US)
  Receive Date: 20151015
  Receipt Date: 20151015
  Transmission Date: 20160304
  Serious: No
  Sender: FDA-Public Use
  Company Number: US-BAYER-2015-444369

PATIENT
  Age: 71 Year
  Sex: Male
  Weight: 85.71 kg

DRUGS (6)
  1. MIRALAX [Suspect]
     Active Substance: POLYETHYLENE GLYCOL 3350
     Indication: HAEMORRHOIDS
     Dosage: UNK
     Dates: start: 20151007
  2. COLACE [Concomitant]
     Active Substance: DOCUSATE SODIUM
     Indication: HAEMORRHOIDS
     Dosage: UNK
     Dates: start: 20151007
  3. METAMUCIL [Concomitant]
     Active Substance: PLANTAGO SEED
     Indication: ANAL FISSURE
     Dosage: UNK
     Dates: start: 20151007
  4. METAMUCIL [Concomitant]
     Active Substance: PLANTAGO SEED
     Indication: HAEMORRHOIDS
  5. MIRALAX [Suspect]
     Active Substance: POLYETHYLENE GLYCOL 3350
     Indication: ANAL FISSURE
  6. COLACE [Concomitant]
     Active Substance: DOCUSATE SODIUM
     Indication: ANAL FISSURE

REACTIONS (1)
  - Off label use [None]

NARRATIVE: CASE EVENT DATE: 20151007
